FAERS Safety Report 10448635 (Version 2)
Quarter: 2014Q3

REPORT INFORMATION
  Report Type: Report from Study
  Country: ES (occurrence: ES)
  Receive Date: 20140912
  Receipt Date: 20140926
  Transmission Date: 20150326
  Serious: Yes (Death)
  Sender: FDA-Public Use
  Company Number: ES-ROCHE-1460972

PATIENT
  Age: 78 Year
  Sex: Female
  Weight: 83 kg

DRUGS (4)
  1. DOXORUBICIN [Suspect]
     Active Substance: DOXORUBICIN
     Indication: HER-2 POSITIVE BREAST CANCER
     Dosage: MOST RECENT DOSE PRIOR TO SERIOUS ADVERSE EVENT: 4/SEP/2014. CYCLE 1 DAY 1.
     Route: 042
     Dates: start: 20140904
  2. PACLITAXEL. [Suspect]
     Active Substance: PACLITAXEL
     Indication: HER-2 POSITIVE BREAST CANCER
     Dosage: MOST RECENT DOSE PRIOR TO SERIOUS ADVERSE EVENT: 4/SEP/2014. CYCLE 1 DAY 1.
     Route: 042
     Dates: start: 20140904
  3. PERTUZUMAB [Suspect]
     Active Substance: PERTUZUMAB
     Indication: HER-2 POSITIVE BREAST CANCER
     Dosage: LOADING DOSE.?MOST RECENT DOSE PRIOR TO SERIOUS ADVERSE EVENT: 4/SEP/2014. CYCLE 1 DAY 1.
     Route: 042
     Dates: start: 20140904
  4. TRASTUZUMAB [Suspect]
     Active Substance: TRASTUZUMAB
     Indication: HER-2 POSITIVE BREAST CANCER
     Dosage: LOADING DOSE.?MOST RECENT DOSE PRIOR TO SERIOUS ADVERSE EVENT: 4/SEP/2014. CYCLE 1 DAY 1.
     Route: 042
     Dates: start: 20140904

REACTIONS (1)
  - Acute respiratory failure [Fatal]

NARRATIVE: CASE EVENT DATE: 20140909
